FAERS Safety Report 5441572-8 (Version None)
Quarter: 2007Q3

REPORT INFORMATION
  Report Type: 
  Country: None (occurrence: None)
  Receive Date: 20070829
  Receipt Date: 20070816
  Transmission Date: 20080115
  Serious: Yes (Other)
  Sender: FDA-Public Use
  Company Number: GXKR2007GB07065

PATIENT
  Age: 56 Year
  Sex: Female

DRUGS (7)
  1. ALENDRONIC ACID [Suspect]
     Dosage: ORAL
     Route: 048
  2. PREDNISOLONE [Suspect]
     Indication: ARTHRITIS
  3. LEFLUNOMIDE [Concomitant]
  4. DICLOFENAC (DICLOFENAC) [Concomitant]
  5. IRON SUPPLEMENTS (NO INGREDIENTS/SUBSTANCES) [Concomitant]
  6. OMEPRAZOLE [Concomitant]
  7. ANTIBIOTICS (NO INGREDIENTS/SUBSTANCES) [Concomitant]

REACTIONS (5)
  - GINGIVITIS [None]
  - IMPAIRED HEALING [None]
  - OSTEONECROSIS [None]
  - OSTEOSCLEROSIS [None]
  - PAIN [None]
